FAERS Safety Report 6157444-X (Version None)
Quarter: 2009Q2

REPORT INFORMATION
  Report Type: 
  Country: None (occurrence: None)
  Receive Date: 20090416
  Receipt Date: 20090414
  Transmission Date: 20091009
  Serious: No
  Sender: FDA-Public Use
  Company Number: US-B.I. PHARMACEUTICALS,INC./RIDGEFIELD-2009-BP-03391BP

PATIENT
  Sex: Female

DRUGS (6)
  1. SPIRIVA [Suspect]
     Indication: CHRONIC OBSTRUCTIVE PULMONARY DISEASE
     Dosage: 36MCG
  2. SPIRIVA [Suspect]
     Indication: ASTHMA
  3. SYMBICORT [Concomitant]
  4. VENTOLIN HFA [Concomitant]
  5. METHADONE [Concomitant]
  6. PRILOSEC [Concomitant]

REACTIONS (1)
  - HYPERSENSITIVITY [None]
